FAERS Safety Report 10053478 (Version 1)
Quarter: 2014Q2

REPORT INFORMATION
  Report Type: Spontaneous
  Country: GR (occurrence: GR)
  Receive Date: 20140402
  Receipt Date: 20140402
  Transmission Date: 20141212
  Serious: Yes (Hospitalization)
  Sender: FDA-Public Use
  Company Number: PHHY2014GR039388

PATIENT
  Age: 75 Year
  Sex: Female

DRUGS (1)
  1. TASIGNA [Suspect]
     Route: 048

REACTIONS (2)
  - Thrombocytopenia [Unknown]
  - Guillain-Barre syndrome [Recovered/Resolved]
